FAERS Safety Report 9887154 (Version 1)
Quarter: 2014Q1

REPORT INFORMATION
  Report Type: Spontaneous
  Country: CA (occurrence: CA)
  Receive Date: 20140211
  Receipt Date: 20140211
  Transmission Date: 20141002
  Serious: Yes (Other)
  Sender: FDA-Public Use
  Company Number: CA-JNJFOC-20140202956

PATIENT
  Age: 50 Year
  Sex: Female
  Weight: 90.72 kg

DRUGS (2)
  1. NICODERM STEP 1 CLEAR [Suspect]
     Indication: SMOKING CESSATION THERAPY
     Route: 061
  2. NICODERM STEP 2 CLEAR [Suspect]
     Indication: SMOKING CESSATION THERAPY
     Route: 061

REACTIONS (3)
  - Phlebitis [Recovered/Resolved]
  - Mobility decreased [Recovered/Resolved]
  - Joint lock [Recovered/Resolved]
